FAERS Safety Report 6788333-5 (Version None)
Quarter: 2010Q2

REPORT INFORMATION
  Report Type: 
  Country: None (occurrence: None)
  Receive Date: 20100623
  Receipt Date: 20080409
  Transmission Date: 20101027
  Serious: No
  Sender: FDA-Public Use
  Company Number: US-PFIZER INC-2008009748

PATIENT
  Sex: Female
  Weight: 72.12 kg

DRUGS (7)
  1. MYCOBUTIN [Suspect]
     Indication: MYCOBACTERIUM AVIUM COMPLEX INFECTION
     Route: 048
     Dates: start: 20071226
  2. CLARITHROMYCIN [Concomitant]
     Dates: start: 20071225
  3. SYNTHROID [Concomitant]
  4. ACIPHEX [Concomitant]
  5. ESKALITH [Concomitant]
  6. LITHIUM CARBONATE [Concomitant]
  7. KLONOPIN [Concomitant]

REACTIONS (11)
  - ARTHRALGIA [None]
  - AURICULAR SWELLING [None]
  - BLOOD SODIUM DECREASED [None]
  - EAR PAIN [None]
  - FLUID RETENTION [None]
  - LIP SWELLING [None]
  - OEDEMA PERIPHERAL [None]
  - PAIN IN EXTREMITY [None]
  - RASH [None]
  - SKIN DISCOLOURATION [None]
  - WEIGHT INCREASED [None]
